FAERS Safety Report 6716264-5 (Version None)
Quarter: 2010Q2

REPORT INFORMATION
  Report Type: 
  Country: None (occurrence: None)
  Receive Date: 20100507
  Receipt Date: 20100505
  Transmission Date: 20101027
  Serious: Yes (Other)
  Sender: FDA-Public Use
  Company Number: US-BRISTOL-MYERS SQUIBB COMPANY-15093354

PATIENT
  Sex: Female

DRUGS (2)
  1. ABILIFY [Suspect]
  2. GEODON [Interacting]

REACTIONS (4)
  - BACK PAIN [None]
  - DRUG INTERACTION [None]
  - MUSCLE SPASMS [None]
  - MYOCARDIAL INFARCTION [None]
